FAERS Safety Report 10427720 (Version 2)
Quarter: 2014Q3

REPORT INFORMATION
  Report Type: Spontaneous
  Country: JP (occurrence: JP)
  Receive Date: 20140903
  Receipt Date: 20140926
  Transmission Date: 20150326
  Serious: No
  Sender: FDA-Public Use
  Company Number: JP-KOWA-2014S1001067

PATIENT
  Sex: Female

DRUGS (5)
  1. FOLIAMIN [Suspect]
     Active Substance: FOLIC ACID
  2. ALLOPURINOL. [Suspect]
     Active Substance: ALLOPURINOL
  3. LIPACREON [Suspect]
     Active Substance: PANCRELIPASE
     Route: 048
  4. CAMOSTAT MESILATE [Suspect]
     Active Substance: CAMOSTAT MESYLATE
  5. LIVALO [Suspect]
     Active Substance: PITAVASTATIN CALCIUM
     Route: 048

REACTIONS (1)
  - Tubulointerstitial nephritis [Unknown]
